FAERS Safety Report 4767828-X (Version None)
Quarter: 2005Q3

REPORT INFORMATION
  Report Type: 
  Country: None (occurrence: None)
  Receive Date: 20050912
  Receipt Date: 20050829
  Transmission Date: 20060218
  Serious: Yes (Hospitalization, Other)
  Sender: FDA-Public Use
  Company Number: 2005122030

PATIENT
  Sex: Male
  Weight: 99.7913 kg

DRUGS (9)
  1. CELEBREX [Suspect]
     Indication: PAIN
     Dosage: 200 MG (200 MG 1 IN 1 D)
  2. BEXTRA [Suspect]
     Indication: PAIN
     Dosage: INTERVAL: EVERY DAY
  3. COUMADIN [Concomitant]
  4. NEXIUM [Concomitant]
  5. BUMEX [Concomitant]
  6. CALCIUM (CALCIUM) [Concomitant]
  7. FLOMAX ^BOEHRINGER INGELHEIM^ (TAMSULOSIN HYDROCHLORIDE) [Concomitant]
  8. COREG [Concomitant]
  9. SINEMET [Concomitant]

REACTIONS (5)
  - ARTHROPATHY [None]
  - ASTHENIA [None]
  - CONDITION AGGRAVATED [None]
  - KNEE ARTHROPLASTY [None]
  - PARKINSON'S DISEASE [None]
